FAERS Safety Report 14636841 (Version 1)
Quarter: 2018Q1

REPORT INFORMATION
  Report Type: Spontaneous
  Country: FR (occurrence: FR)
  Receive Date: 20180314
  Receipt Date: 20180314
  Transmission Date: 20180509
  Serious: Yes (Disabling)
  Sender: FDA-Public Use
  Company Number: FR-PFIZER INC-2018051306

PATIENT
  Age: 49 Year
  Sex: Female
  Weight: 84 kg

DRUGS (2)
  1. DALACINE [Suspect]
     Active Substance: CLINDAMYCIN HYDROCHLORIDE
     Indication: DENTAL OPERATION
     Dosage: 4 DF, DAILY
     Dates: start: 20180115, end: 20180121
  2. BETASERC [Concomitant]
     Active Substance: BETAHISTINE
     Dosage: UNK
     Dates: start: 20171227

REACTIONS (4)
  - Diarrhoea [Recovering/Resolving]
  - Flatulence [Unknown]
  - Pain [Unknown]
  - Reproductive tract disorder [Not Recovered/Not Resolved]

NARRATIVE: CASE EVENT DATE: 20180116
